FAERS Safety Report 10914822 (Version 1)
Quarter: 2015Q1

REPORT INFORMATION
  Report Type: Spontaneous
  Country: US (occurrence: US)
  Receive Date: 20150313
  Receipt Date: 20150313
  Transmission Date: 20150721
  Serious: Yes (Hospitalization, Other)
  Sender: FDA-Public Use
  Company Number: US-ASTRAZENECA-2015SE21655

PATIENT
  Age: 45 Year
  Sex: Male
  Weight: 128 kg

DRUGS (7)
  1. CHOLESTEROL MEDICATION [Suspect]
     Active Substance: UNSPECIFIED INGREDIENT
     Route: 065
  2. LIPITOR [Concomitant]
     Active Substance: ATORVASTATIN CALCIUM
     Indication: BLOOD CHOLESTEROL INCREASED
     Route: 048
  3. LIPITOR [Concomitant]
     Active Substance: ATORVASTATIN CALCIUM
     Indication: BLOOD CHOLESTEROL INCREASED
     Route: 048
  4. LIPITOR [Concomitant]
     Active Substance: ATORVASTATIN CALCIUM
     Indication: BLOOD CHOLESTEROL INCREASED
     Route: 048
  5. BYDUREON [Suspect]
     Active Substance: EXENATIDE
     Indication: DIABETES MELLITUS
     Dosage: WEEKLY
     Route: 065
  6. CHEMOTHERAPY [Suspect]
     Active Substance: UNSPECIFIED INGREDIENT
     Route: 065
  7. CRESTOR [Suspect]
     Active Substance: ROSUVASTATIN CALCIUM
     Indication: BLOOD CHOLESTEROL INCREASED
     Route: 048

REACTIONS (12)
  - Splenomegaly [Not Recovered/Not Resolved]
  - Memory impairment [Not Recovered/Not Resolved]
  - Hepatic enzyme increased [Unknown]
  - Diabetes mellitus [Not Recovered/Not Resolved]
  - Leukaemia [Recovered/Resolved]
  - Gait disturbance [Recovered/Resolved]
  - Hepatomegaly [Not Recovered/Not Resolved]
  - Iron overload [Not Recovered/Not Resolved]
  - Weight increased [Unknown]
  - Bone disorder [Recovered/Resolved]
  - Hepatic cirrhosis [Not Recovered/Not Resolved]
  - Blood cholesterol abnormal [Unknown]
